FAERS Safety Report 9510743 (Version 2)
Quarter: 2015Q2

REPORT INFORMATION
  Report Type: Spontaneous
  Country: BR (occurrence: BR)
  Receive Date: 20130910
  Receipt Date: 20150622
  Transmission Date: 20150821
  Serious: Yes (Other)
  Sender: FDA-Public Use
  Company Number: BR-AMGEN-BRASP2013062643

PATIENT
  Age: 56 Year
  Sex: Female
  Weight: 64 kg

DRUGS (5)
  1. GABAPENTIN. [Concomitant]
     Active Substance: GABAPENTIN
     Dosage: 1 TABLET OF STRENGTH 500 MG, 3X/DAY
     Route: 048
  2. ENBREL [Suspect]
     Active Substance: ETANERCEPT
     Indication: RHEUMATOID ARTHRITIS
     Dosage: 50 MG, ONCE WEEKLY
     Route: 058
     Dates: start: 201207
  3. TAMOXIFEN [Concomitant]
     Active Substance: TAMOXIFEN
     Dosage: 1 TABLET OF STRENGTH 20 MG, 1X/DAY
     Route: 048
  4. TECNOMET                           /00113801/ [Concomitant]
     Active Substance: METHOTREXATE
     Dosage: 4 TABLETS OF STRENGTH 2.5 MG (10 MG), ONCE WEEKLY
     Route: 048
  5. NORIPURUM FOLICO [Concomitant]
     Dosage: UNK

REACTIONS (7)
  - Arthralgia [Unknown]
  - Blood test abnormal [Unknown]
  - Foot deformity [Not Recovered/Not Resolved]
  - Arthritis infective [Not Recovered/Not Resolved]
  - Pain in extremity [Unknown]
  - Anaemia [Not Recovered/Not Resolved]
  - Injection site pain [Unknown]

NARRATIVE: CASE EVENT DATE: 201207
